FAERS Safety Report 16868179 (Version 1)
Quarter: 2019Q4

REPORT INFORMATION
  Report Type: Spontaneous
  Country: SI (occurrence: SI)
  Receive Date: 20190930
  Receipt Date: 20190930
  Transmission Date: 20200122
  Serious: Yes (Disabling)
  Sender: FDA-Public Use
  Company Number: None

PATIENT
  Age: 22 Year
  Sex: Male
  Weight: 90 kg

DRUGS (1)
  1. PROPECIA [Suspect]
     Active Substance: FINASTERIDE
     Indication: ANDROGENETIC ALOPECIA
     Dosage: ?          QUANTITY:1 TABLET(S);?
     Route: 048
     Dates: start: 20170315, end: 20170401

REACTIONS (8)
  - Erectile dysfunction [None]
  - Semen volume decreased [None]
  - Cognitive disorder [None]
  - Semen viscosity abnormal [None]
  - Genital hypoaesthesia [None]
  - Penile size reduced [None]
  - Gynaecomastia [None]
  - Loss of libido [None]

NARRATIVE: CASE EVENT DATE: 20170401
